FAERS Safety Report 6057126-9 (Version None)
Quarter: 2009Q1

REPORT INFORMATION
  Report Type: 
  Country: None (occurrence: None)
  Receive Date: 20090126
  Receipt Date: 20090126
  Transmission Date: 20090719
  Serious: Yes (Life-Threatening, Other)
  Sender: FDA-Public Use
  Company Number: None

PATIENT
  Age: 26 Year
  Sex: Female
  Weight: 63.5036 kg

DRUGS (1)
  1. CHANTIX [Suspect]
     Indication: SMOKING CESSATION THERAPY
     Dosage: 2 MG DAILY PO
     Route: 048
     Dates: start: 20081213, end: 20081221

REACTIONS (8)
  - CARDIAC DISORDER [None]
  - DYSPNOEA [None]
  - FRUSTRATION [None]
  - HOSTILITY [None]
  - INSOMNIA [None]
  - MANIA [None]
  - PANIC ATTACK [None]
  - SUICIDAL IDEATION [None]
